FAERS Safety Report 7203165-1 (Version None)
Quarter: 2010Q4

REPORT INFORMATION
  Report Type: 
  Country: None (occurrence: None)
  Receive Date: 20101230
  Receipt Date: 20101220
  Transmission Date: 20110411
  Serious: Yes (Hospitalization)
  Sender: FDA-Public Use
  Company Number: SE-AMGEN-SWECT2010007881

PATIENT

DRUGS (7)
  1. ETANERCEPT [Suspect]
     Indication: RHEUMATOID ARTHRITIS
     Dosage: 50 MG, QWK
     Route: 058
     Dates: start: 20090312, end: 20100330
  2. NSAID'S [Concomitant]
     Dosage: UNK
     Dates: start: 20091209
  3. ACETAMINOPHEN [Concomitant]
     Dosage: 500 MG, UNK
  4. IBUMETIN [Concomitant]
     Dosage: 600 MG, UNK
  5. PREDNISOLON                        /00016201/ [Concomitant]
     Dosage: 2.5 MG, UNK
  6. ORUDIS                             /00321701/ [Concomitant]
     Dosage: 200 MG, UNK
  7. MIANSERIN [Concomitant]
     Dosage: 10 MG, UNK

REACTIONS (2)
  - LUNG ADENOCARCINOMA [None]
  - MALIGNANT RESPIRATORY TRACT NEOPLASM [None]
